FAERS Safety Report 5774847-3 (Version None)
Quarter: 2008Q2

REPORT INFORMATION
  Report Type: 
  Country: None (occurrence: None)
  Receive Date: 20080617
  Receipt Date: 20080606
  Transmission Date: 20081010
  Serious: Yes (Other)
  Sender: FDA-Public Use
  Company Number: US-NOVOPROD-276042

PATIENT
  Age: 51 Year
  Sex: Female

DRUGS (4)
  1. NOVOLOG [Suspect]
     Indication: INSULIN-REQUIRING TYPE 2 DIABETES MELLITUS
     Dosage: UNK, QD
     Route: 058
  2. NOVOLOG [Suspect]
     Dosage: 20 IU, QD
     Route: 058
  3. NOVOLOG [Suspect]
     Dosage: 90 IU, QD
     Route: 058
  4. LANTUS [Concomitant]
     Indication: INSULIN-REQUIRING TYPE 2 DIABETES MELLITUS
     Dosage: 75 IU, BID
     Route: 058

REACTIONS (3)
  - BLOOD GLUCOSE INCREASED [None]
  - DIABETIC RETINOPATHY [None]
  - EYE HAEMORRHAGE [None]
